FAERS Safety Report 19276884 (Version 3)
Quarter: 2025Q3

REPORT INFORMATION
  Report Type: Spontaneous
  Country: US (occurrence: US)
  Receive Date: 20210519
  Receipt Date: 20250811
  Transmission Date: 20251021
  Serious: No
  Sender: AMGEN
  Company Number: US-HORIZON THERAPEUTICS-HZN-2021-001462

PATIENT
  Age: 57 Year
  Sex: Female

DRUGS (4)
  1. TEPEZZA [Suspect]
     Active Substance: TEPROTUMUMAB-TRBW
     Indication: Product used for unknown indication
     Route: 040
     Dates: end: 202008
  2. TEPEZZA [Suspect]
     Active Substance: TEPROTUMUMAB-TRBW
     Route: 040
  3. TEPEZZA [Suspect]
     Active Substance: TEPROTUMUMAB-TRBW
     Route: 040
     Dates: start: 202008, end: 202008
  4. SOLU-MEDROL [Concomitant]
     Active Substance: METHYLPREDNISOLONE SODIUM SUCCINATE
     Route: 065

REACTIONS (12)
  - Lacrimation increased [Unknown]
  - Eye pain [Unknown]
  - Eye swelling [Unknown]
  - Onychoclasis [Recovering/Resolving]
  - Alopecia [Recovering/Resolving]
  - Muscle spasms [Unknown]
  - Hypoacusis [Unknown]
  - Ear discomfort [Unknown]
  - Dry skin [Unknown]
  - Nausea [Unknown]
  - Fatigue [Unknown]
  - Blood glucose increased [Unknown]
